FAERS Safety Report 4335231-2 (Version None)
Quarter: 2004Q2

REPORT INFORMATION
  Report Type: 
  Country: None (occurrence: None)
  Receive Date: 20040406
  Receipt Date: 20040211
  Transmission Date: 20050107
  Serious: Yes (Other)
  Sender: FDA-Public Use
  Company Number: 358701

PATIENT

DRUGS (1)
  1. FUZEON [Suspect]

REACTIONS (5)
  - ILL-DEFINED DISORDER [None]
  - INJECTION SITE REACTION [None]
  - NODULE [None]
  - SKIN DISORDER [None]
  - SWELLING [None]
